FAERS Safety Report 8356287-6 (Version None)
Quarter: 2012Q2

REPORT INFORMATION
  Report Type: 
  Country: None (occurrence: None)
  Receive Date: 20120514
  Receipt Date: 20120508
  Transmission Date: 20120825
  Serious: Yes (Other)
  Sender: FDA-Public Use
  Company Number: DE-PFIZER INC-2012112571

PATIENT
  Age: 77 Year
  Sex: Male

DRUGS (1)
  1. NORVASC [Suspect]
     Dosage: 10 MG, UNK
     Dates: start: 20020101

REACTIONS (2)
  - TOOTH LOSS [None]
  - GINGIVITIS [None]
